FAERS Safety Report 7908600-9 (Version None)
Quarter: 2011Q4

REPORT INFORMATION
  Report Type: 
  Country: None (occurrence: None)
  Receive Date: 20111111
  Receipt Date: 20111031
  Transmission Date: 20120403
  Serious: Yes (Hospitalization, Other)
  Sender: FDA-Public Use
  Company Number: PHHY2011IT85463

PATIENT
  Sex: Female

DRUGS (9)
  1. EXJADE [Suspect]
     Indication: HAEMOCHROMATOSIS
     Dosage: 500 MG, DAILY
     Dates: start: 20110823, end: 20110920
  2. BLOOD TRANSFUSION, AUXILIARY PRODUCTS [Concomitant]
     Dosage: 8 UNITS CRC/MONTH
  3. CANDESARTAN CILEXETIL [Concomitant]
     Indication: HYPERTENSION
     Dosage: 8 MG, UNK
     Route: 048
     Dates: start: 20110920
  4. DANAZOL [Concomitant]
     Dosage: 200 MG, UNK
     Route: 048
     Dates: start: 20110913, end: 20110920
  5. DANAZOL [Concomitant]
     Dosage: 100 MG, UNK
  6. EXJADE [Suspect]
     Indication: MYELODYSPLASTIC SYNDROME
     Dosage: 625 MG, DAILY
     Route: 048
     Dates: start: 20110816
  7. DANAZOL [Concomitant]
     Dosage: 200 MG
     Dates: start: 20110913, end: 20110920
  8. METFORMIN HCL [Concomitant]
     Indication: TYPE 2 DIABETES MELLITUS
     Dosage: 500 MG, UNK
     Dates: start: 20110920
  9. INSULIN [Concomitant]

REACTIONS (13)
  - C-REACTIVE PROTEIN INCREASED [None]
  - NAUSEA [None]
  - BLOOD CREATININE INCREASED [None]
  - RENAL FAILURE ACUTE [None]
  - POLYURIA [None]
  - ASTHENIA [None]
  - PROCALCITONIN INCREASED [None]
  - ANURIA [None]
  - SEPSIS [None]
  - DIARRHOEA [None]
  - ABDOMINAL PAIN [None]
  - TUBULOINTERSTITIAL NEPHRITIS [None]
  - PYREXIA [None]
